FAERS Safety Report 13860228 (Version 8)
Quarter: 2019Q3

REPORT INFORMATION
  Report Type: Report from Study
  Country: CR (occurrence: CR)
  Receive Date: 20170811
  Receipt Date: 20190924
  Transmission Date: 20191004
  Serious: Yes (Other)
  Sender: FDA-Public Use
  Company Number: PHHY2017CR116421

PATIENT
  Sex: Female
  Weight: 56 kg

DRUGS (4)
  1. SIRDALUD [Suspect]
     Active Substance: TIZANIDINE
     Indication: PRODUCT USED FOR UNKNOWN INDICATION
     Dosage: 1 DF, BID
     Route: 048
  2. TEGRETOL [Suspect]
     Active Substance: CARBAMAZEPINE
     Indication: PRODUCT USED FOR UNKNOWN INDICATION
     Dosage: 1 DF, BID
     Route: 048
  3. GILENYA [Suspect]
     Active Substance: FINGOLIMOD HYDROCHLORIDE
     Indication: MULTIPLE SCLEROSIS
     Dosage: 0.5 MG, QD
     Route: 048
     Dates: start: 2017
  4. FAMOTIDINE. [Concomitant]
     Active Substance: FAMOTIDINE
     Indication: PRODUCT USED FOR UNKNOWN INDICATION
     Route: 065

REACTIONS (14)
  - Anxiety [Unknown]
  - Gait inability [Unknown]
  - Pain [Recovering/Resolving]
  - Gastritis [Unknown]
  - Breast discharge [Unknown]
  - Tremor [Unknown]
  - Nervousness [Unknown]
  - Feeling abnormal [Unknown]
  - Procedural pain [Unknown]
  - Dyskinesia [Unknown]
  - Vertigo [Unknown]
  - Pain in extremity [Unknown]
  - Lymphoma [Unknown]
  - Tachycardia [Unknown]
